FAERS Safety Report 6671259-5 (Version None)
Quarter: 2010Q2

REPORT INFORMATION
  Report Type: 
  Country: None (occurrence: None)
  Receive Date: 20100407
  Receipt Date: 20100329
  Transmission Date: 20101027
  Serious: Yes (Hospitalization)
  Sender: FDA-Public Use
  Company Number: CL-ROCHE-694464

PATIENT
  Sex: Male
  Weight: 60 kg

DRUGS (4)
  1. CAPECITABINE [Suspect]
     Indication: COLON CANCER
     Dosage: FREQUENCY: 1 DOSE PER 12 HOURS
     Route: 048
     Dates: start: 20091203, end: 20100227
  2. PYRIDOXINE HCL [Concomitant]
     Dosage: DRUG REPORTED : VITABE
     Route: 048
  3. IRON [Concomitant]
     Route: 048
  4. LEVOTHYROXINE SODIUM [Concomitant]
     Indication: HYPOTHYROIDISM
     Route: 048

REACTIONS (6)
  - ABDOMINAL DISTENSION [None]
  - DEHYDRATION [None]
  - DIARRHOEA [None]
  - DISORIENTATION [None]
  - PYREXIA [None]
  - YELLOW SKIN [None]
